FAERS Safety Report 6572930-6 (Version None)
Quarter: 2010Q1

REPORT INFORMATION
  Report Type: 
  Country: None (occurrence: None)
  Receive Date: 20100208
  Receipt Date: 20100129
  Transmission Date: 20100710
  Serious: Yes (Death)
  Sender: FDA-Public Use
  Company Number: US-BIOGENIDEC-2010BI002237

PATIENT
  Age: 57 Year
  Sex: Female

DRUGS (11)
  1. TYSABRI [Suspect]
     Indication: MULTIPLE SCLEROSIS
     Route: 042
     Dates: start: 20061107, end: 20100106
  2. DURAGESIC-100 [Concomitant]
  3. BACLOFEN [Concomitant]
  4. GABAPENTIN [Concomitant]
  5. CYMBALTA [Concomitant]
  6. HALCION [Concomitant]
  7. OXYBUTYNIN [Concomitant]
  8. AMANTADINE HCL [Concomitant]
  9. AMBIEN [Concomitant]
  10. LIPITOR [Concomitant]
  11. DETROL [Concomitant]

REACTIONS (2)
  - HYPERLIPIDAEMIA [None]
  - HYPERTENSION [None]
